FAERS Safety Report 18126593 (Version 3)
Quarter: 2020Q3

REPORT INFORMATION
  Report Type: Report from Study
  Country: AT (occurrence: AT)
  Receive Date: 20200809
  Receipt Date: 20200816
  Transmission Date: 20201103
  Serious: Yes (Death, Life-Threatening)
  Sender: FDA-Public Use
  Company Number: AT-B.I. PHARMACEUTICALS,INC./RIDGEFIELD-2020-BI-038023

PATIENT
  Age: 72 Year
  Sex: Female
  Weight: 50 kg

DRUGS (1)
  1. GILOTRIF [Suspect]
     Active Substance: AFATINIB
     Indication: NON-SMALL CELL LUNG CANCER
     Route: 048
     Dates: start: 20150701, end: 20160906

REACTIONS (10)
  - Urinary tract infection [Recovered/Resolved]
  - Paronychia [Recovered/Resolved]
  - Malignant neoplasm progression [Recovered/Resolved]
  - Dry mouth [Recovered/Resolved]
  - Urinary tract infection [Recovered/Resolved]
  - Dry eye [Recovered/Resolved]
  - Death [Fatal]
  - Diarrhoea [Recovered/Resolved]
  - Nasal dryness [Recovered/Resolved]
  - Eczema [Recovered/Resolved]

NARRATIVE: CASE EVENT DATE: 20150814
